FAERS Safety Report 4947684-7 (Version None)
Quarter: 2006Q1

REPORT INFORMATION
  Report Type: 
  Country: None (occurrence: None)
  Receive Date: 20060317
  Receipt Date: 20060317
  Transmission Date: 20060701
  Serious: Yes (Life-Threatening, Hospitalization)
  Sender: FDA-Public Use
  Company Number: None

PATIENT
  Age: 14 Year
  Sex: Male
  Weight: 44 kg

DRUGS (2)
  1. ZOSYN [Suspect]
     Indication: CONDITION AGGRAVATED
     Dosage: 3.375 QM Q 8 HOURS IV
     Route: 042
     Dates: start: 20060310
  2. TOBRAMYCIN [Concomitant]

REACTIONS (3)
  - DYSPHAGIA [None]
  - INFUSION RELATED REACTION [None]
  - PHARYNGEAL OEDEMA [None]
